FAERS Safety Report 4803410-3 (Version None)
Quarter: 2005Q4

REPORT INFORMATION
  Report Type: 
  Country: None (occurrence: None)
  Receive Date: 20051014
  Receipt Date: 20051004
  Transmission Date: 20060501
  Serious: Yes (Hospitalization, Other)
  Sender: FDA-Public Use
  Company Number: HQWYE820704OCT05

PATIENT
  Age: 77 Year
  Sex: Female

DRUGS (16)
  1. CORDARONE [Suspect]
     Indication: ATRIAL FIBRILLATION
     Dosage: SEE IMAGE
     Route: 048
     Dates: end: 20050601
  2. CORDARONE [Suspect]
     Indication: ATRIAL FIBRILLATION
     Dosage: SEE IMAGE
     Route: 048
     Dates: start: 20050621, end: 20050706
  3. DEXROXAT (PAROXETINE HYDROCHLORIDE, ) [Suspect]
     Dosage: 20 MG 1X PER 1 DAY, ORAL
     Route: 048
     Dates: start: 20050711, end: 20050721
  4. DILTIAZEM HYDROCHLORIDE [Suspect]
     Dosage: ORAL
     Route: 048
     Dates: start: 20050625, end: 20050629
  5. NOROXIN [Suspect]
     Indication: URINARY TRACT INFECTION
     Dosage: 400 MG 2X PER 1 DAY, ORAL
     Route: 048
     Dates: start: 20050715, end: 20050721
  6. RULID (ROXITHROMYCIN, ) [Suspect]
     Dosage: 150 MG 2X PER 1 DAY, ORAL
     Route: 048
     Dates: start: 20050721, end: 20050803
  7. DILTIAZEM HYDROCHLORIDE [Suspect]
     Dosage: (60 MG  TABELTS), ORAL
     Route: 048
     Dates: start: 20050629, end: 20050706
  8. FUROSEMIDE [Concomitant]
  9. RAMIPRIL [Concomitant]
  10. TENORMIN [Concomitant]
  11. PREVISCAN (FLUIDIONE) [Concomitant]
  12. FORADIL [Concomitant]
  13. MIXTARD HUMAN 70/30 [Concomitant]
  14. OXEOL             (BAMBUTEROL HYDROCHLORIDE) [Concomitant]
  15. BECLOMETHASONE DIPROPIONATE [Concomitant]
  16. BRONCHODUAL              (FENOTEROL HYDROBROMIDE /IPRATROPIUM BROMIDE) [Concomitant]

REACTIONS (7)
  - AORTIC VALVE STENOSIS [None]
  - EFFUSION [None]
  - EOSINOPHILIC PNEUMONIA [None]
  - GENERAL PHYSICAL HEALTH DETERIORATION [None]
  - HYPOXIA [None]
  - PULMONARY OEDEMA [None]
  - URINARY TRACT INFECTION [None]
